FAERS Safety Report 17145154 (Version 2)
Quarter: 2019Q4

REPORT INFORMATION
  Report Type: Report from Study
  Country: US (occurrence: US)
  Receive Date: 20191212
  Receipt Date: 20191219
  Transmission Date: 20200122
  Serious: Yes (Other)
  Sender: FDA-Public Use
  Company Number: US-ROCHE-2490805

PATIENT
  Sex: Male

DRUGS (2)
  1. OCREVUS [Suspect]
     Active Substance: OCRELIZUMAB
     Indication: MULTIPLE SCLEROSIS
     Dosage: UNKNOWN
     Route: 065
     Dates: start: 20190604
  2. AUBAGIO [Concomitant]
     Active Substance: TERIFLUNOMIDE
     Indication: MULTIPLE SCLEROSIS

REACTIONS (1)
  - Herpes zoster [Unknown]
